FAERS Safety Report 10183825 (Version 1)
Quarter: 2014Q2

REPORT INFORMATION
  Report Type: Spontaneous
  Country: CN (occurrence: CN)
  Receive Date: 20140520
  Receipt Date: 20140520
  Transmission Date: 20141212
  Serious: Yes (Hospitalization)
  Sender: FDA-Public Use
  Company Number: PHHY2014CN059545

PATIENT
  Age: 24 Year
  Sex: Male
  Weight: 72 kg

DRUGS (4)
  1. TEGRETOL [Suspect]
     Indication: TRIGEMINAL NEURALGIA
     Dosage: 200 MG, QD
     Route: 048
     Dates: start: 20130318, end: 20130422
  2. MECOBALAMIN [Concomitant]
     Dosage: 1 DF, TID
     Route: 048
  3. DIBAZOL [Concomitant]
     Dosage: 2 DF, TID
     Route: 048
  4. VITAMIN B1 [Concomitant]
     Dosage: 2 DF, TID
     Route: 048

REACTIONS (11)
  - Erythema multiforme [Recovering/Resolving]
  - Pyrexia [Recovering/Resolving]
  - Chills [Recovering/Resolving]
  - Rash maculo-papular [Recovering/Resolving]
  - Vomiting [Recovering/Resolving]
  - Rash papular [Recovering/Resolving]
  - Urticaria [Recovering/Resolving]
  - Rash generalised [Recovering/Resolving]
  - Sense of oppression [Recovering/Resolving]
  - Drug eruption [Recovering/Resolving]
  - Blister [Recovering/Resolving]
